FAERS Safety Report 10654468 (Version 1)
Quarter: 2014Q4

REPORT INFORMATION
  Report Type: Spontaneous
  Country: CN (occurrence: CN)
  Receive Date: 20141216
  Receipt Date: 20141216
  Transmission Date: 20150529
  Serious: Yes (Death, Hospitalization, Other)
  Sender: FDA-Public Use
  Company Number: PHHY2014CN160125

PATIENT
  Age: 42 Year
  Sex: Male

DRUGS (7)
  1. ALLOPURINOL. [Suspect]
     Active Substance: ALLOPURINOL
     Indication: PAIN
     Route: 065
  2. COLCHICINE. [Suspect]
     Active Substance: COLCHICINE
     Indication: PAIN
     Route: 065
  3. MEROPENEM. [Suspect]
     Active Substance: MEROPENEM
     Indication: EPISTAXIS
     Route: 065
  4. METHOTREXATE [Suspect]
     Active Substance: METHOTREXATE
     Indication: MALAISE
     Route: 065
  5. CEFTAZIDIME. [Suspect]
     Active Substance: CEFTAZIDIME
     Indication: EPISTAXIS
     Route: 065
  6. AMIKACIN [Suspect]
     Active Substance: AMIKACIN
     Indication: HYPERBILIRUBINAEMIA
     Route: 065
  7. CEFOPERAZONA/SULBACTAM [Suspect]
     Active Substance: CEFOPERAZONE SODIUM\SULBACTAM SODIUM
     Indication: HYPERBILIRUBINAEMIA
     Route: 065

REACTIONS (19)
  - Bacterial infection [Unknown]
  - General physical health deterioration [Fatal]
  - Hyperbilirubinaemia [Unknown]
  - Malaise [Fatal]
  - Pyrexia [Fatal]
  - Epistaxis [Unknown]
  - Febrile neutropenia [Unknown]
  - Septic shock [Fatal]
  - Body temperature increased [Fatal]
  - Acinetobacter infection [Unknown]
  - Agitation [Fatal]
  - Multi-organ failure [Unknown]
  - Klebsiella infection [Unknown]
  - Arthralgia [Unknown]
  - Shock [Fatal]
  - Drug ineffective [Unknown]
  - Dyspnoea [Fatal]
  - Oral herpes [Unknown]
  - Multiple-drug resistance [Unknown]
